FAERS Safety Report 4521729-0 (Version None)
Quarter: 2004Q4

REPORT INFORMATION
  Report Type: 
  Country: None (occurrence: None)
  Receive Date: 20041206
  Receipt Date: 20041125
  Transmission Date: 20050328
  Serious: Yes (Other)
  Sender: FDA-Public Use
  Company Number: 2004-11-1497

PATIENT
  Age: 11 Year
  Sex: Male

DRUGS (2)
  1. CELESTAMINE TAB [Suspect]
     Dosage: 1 TAB ORAL
     Route: 048
     Dates: start: 19991101, end: 20030201
  2. UNSPECIFIED THERAPEUTIC AGENT [Suspect]

REACTIONS (1)
  - HEPATOTOXICITY [None]
